FAERS Safety Report 15706778 (Version 3)
Quarter: 2019Q2

REPORT INFORMATION
  Report Type: Report from Study
  Country: US (occurrence: US)
  Receive Date: 20181210
  Receipt Date: 20190503
  Transmission Date: 20190711
  Serious: Yes (Hospitalization)
  Sender: FDA-Public Use
  Company Number: US-ACTELION-A-US2018-178937

PATIENT
  Sex: Female
  Weight: 78.01 kg

DRUGS (5)
  1. VELETRI [Suspect]
     Active Substance: EPOPROSTENOL
     Indication: PULMONARY ARTERIAL HYPERTENSION
     Dosage: 18.3 NG/KG, PER MIN
     Route: 042
  2. VELETRI [Suspect]
     Active Substance: EPOPROSTENOL
     Dosage: UNK
     Route: 042
  3. VELETRI [Suspect]
     Active Substance: EPOPROSTENOL
     Dosage: 7.62 NG/KG, PER MIN
     Route: 042
  4. LETAIRIS [Concomitant]
     Active Substance: AMBRISENTAN
  5. VELETRI [Suspect]
     Active Substance: EPOPROSTENOL
     Dosage: 16.51 NG/KG, PER MIN
     Route: 042

REACTIONS (20)
  - Oxygen saturation decreased [Unknown]
  - Diarrhoea [Unknown]
  - Headache [Unknown]
  - Nausea [Unknown]
  - Feeling abnormal [Unknown]
  - Oropharyngeal pain [Unknown]
  - Fatigue [Unknown]
  - Hospitalisation [Unknown]
  - Pain in jaw [Unknown]
  - Dizziness [Unknown]
  - Catheter site pruritus [Unknown]
  - Dyspnoea [Unknown]
  - Constipation [Unknown]
  - Nervousness [Unknown]
  - Palpitations [Unknown]
  - Catheter site vesicles [Unknown]
  - Skin irritation [Unknown]
  - Hypoxia [Unknown]
  - Catheter site haemorrhage [Unknown]
  - Condition aggravated [Unknown]
